FAERS Safety Report 26135713 (Version 1)
Quarter: 2025Q4

REPORT INFORMATION
  Report Type: Spontaneous
  Country: US (occurrence: US)
  Receive Date: 20251209
  Receipt Date: 20251209
  Transmission Date: 20260117
  Serious: Yes (Hospitalization)
  Sender: PFIZER
  Company Number: US-PFIZER INC-202500239110

PATIENT
  Age: 56 Year
  Sex: Male

DRUGS (1)
  1. XELJANZ XR [Suspect]
     Active Substance: TOFACITINIB CITRATE
     Indication: Colitis ulcerative
     Dosage: XR 11MG TABLET 1 TABLET DAILY IN THE MORNING

REACTIONS (1)
  - Hernia repair [Unknown]

NARRATIVE: CASE EVENT DATE: 20240101
